FAERS Safety Report 6804611-5 (Version None)
Quarter: 2010Q2

REPORT INFORMATION
  Report Type: 
  Country: None (occurrence: None)
  Receive Date: 20100628
  Receipt Date: 20070419
  Transmission Date: 20101027
  Serious: No
  Sender: FDA-Public Use
  Company Number: US-PFIZER INC-2007032298

PATIENT
  Sex: Female
  Weight: 59.09 kg

DRUGS (10)
  1. XALATAN [Suspect]
     Indication: GLAUCOMA
     Dates: start: 19920101
  2. METHOTREXATE [Concomitant]
  3. PREDNISONE [Concomitant]
  4. ACETYLSALICYLIC ACID [Concomitant]
  5. FOLIC ACID [Concomitant]
  6. CALCIUM CARBONATE [Concomitant]
  7. CITRACAL [Concomitant]
  8. VITAMIN B6 [Concomitant]
  9. VITAMIN B-12 [Concomitant]
  10. ACTONEL [Concomitant]

REACTIONS (1)
  - VISUAL ACUITY REDUCED [None]
